FAERS Safety Report 7323436-8 (Version None)
Quarter: 2011Q1

REPORT INFORMATION
  Report Type: 
  Country: None (occurrence: None)
  Receive Date: 20110301
  Receipt Date: 20110223
  Transmission Date: 20110831
  Serious: Yes (Other)
  Sender: FDA-Public Use
  Company Number: PL-GENZYME-THYM-1002323

PATIENT
  Age: 6 Month
  Sex: Male

DRUGS (12)
  1. THYMOGLOBULIN [Suspect]
     Indication: ACUTE GRAFT VERSUS HOST DISEASE
  2. CYCLOSPORINE [Concomitant]
     Indication: PROPHYLAXIS AGAINST GRAFT VERSUS HOST DISEASE
  3. PREDNISOLONE [Concomitant]
     Indication: IMMUNOSUPPRESSION
  4. CYCLOPHOSPHAMIDE [Concomitant]
     Indication: BONE MARROW CONDITIONING REGIMEN
  5. TACROLIMUS [Concomitant]
     Indication: IMMUNOSUPPRESSION
  6. IMMUNOGLOBULINS [Concomitant]
     Indication: PRODUCT USED FOR UNKNOWN INDICATION
     Route: 042
  7. MYCOPHENOLATE MOFETIL [Concomitant]
     Indication: IMMUNOSUPPRESSION
  8. THYMOGLOBULIN [Suspect]
     Indication: BONE MARROW CONDITIONING REGIMEN
     Route: 042
  9. ANTIVIRALS NOS [Concomitant]
     Indication: VIRAL INFECTION
  10. TREOSULFAN [Concomitant]
     Indication: BONE MARROW CONDITIONING REGIMEN
  11. ANTIFUNGALS [Concomitant]
     Indication: FUNGAL INFECTION
  12. ANTIBIOTICS [Concomitant]
     Indication: ANTIBIOTIC THERAPY

REACTIONS (7)
  - GASTROINTESTINAL HAEMORRHAGE [None]
  - PORTAL VEIN THROMBOSIS [None]
  - COLLATERAL CIRCULATION [None]
  - CYTOMEGALOVIRUS HEPATITIS [None]
  - SPLENOMEGALY [None]
  - VANISHING BILE DUCT SYNDROME [None]
  - ACUTE GRAFT VERSUS HOST DISEASE [None]
